FAERS Safety Report 8975549 (Version 1)
Quarter: 2012Q4

REPORT INFORMATION
  Report Type: 
  Country: US (occurrence: US)
  Receive Date: 20121219
  Receipt Date: 20121219
  Transmission Date: 20130627
  Serious: No
  Sender: FDA-Public Use
  Company Number: US-PFIZER INC-2012317796

PATIENT
  Age: 55 Year
  Sex: Male
  Weight: 109 kg

DRUGS (6)
  1. CELEBREX [Suspect]
     Indication: PAIN
     Dosage: 200 mg, 1x/day
     Route: 048
     Dates: start: 201112, end: 201206
  2. CELEBREX [Suspect]
     Dosage: 200 mg, as needed
     Route: 048
     Dates: start: 2012
  3. CELEBREX [Suspect]
     Dosage: 400 mg (2 capsules of 200mg), 1x/day
     Route: 048
     Dates: start: 201206
  4. LIPITOR [Concomitant]
     Indication: HIGH CHOLESTEROL
     Dosage: 40 mg, 1x/day
  5. HYDROCHLOROTHIAZIDE [Concomitant]
     Indication: BLOOD PRESSURE HIGH
     Dosage: UNK
  6. IRBESARTAN [Concomitant]
     Indication: BLOOD PRESSURE HIGH
     Dosage: UNK

REACTIONS (1)
  - Drug ineffective [Unknown]
